FAERS Safety Report 4435335-X (Version None)
Quarter: 2004Q3

REPORT INFORMATION
  Report Type: 
  Country: None (occurrence: None)
  Receive Date: 20040827
  Receipt Date: 20040819
  Transmission Date: 20050211
  Serious: Yes (Hospitalization)
  Sender: FDA-Public Use
  Company Number: US-JNJFOC-20040806904

PATIENT
  Sex: Female

DRUGS (13)
  1. DURAGESIC [Suspect]
     Route: 062
     Dates: start: 19950101
  2. DURAGESIC [Suspect]
     Route: 062
     Dates: start: 19950101
  3. PLAVIX [Concomitant]
     Route: 049
  4. VICODIN [Concomitant]
  5. VICODIN [Concomitant]
  6. LISONOPRIL [Concomitant]
     Route: 049
  7. ASPIRIN [Concomitant]
     Route: 049
  8. BUSPAR [Concomitant]
     Route: 049
  9. PAXIL [Concomitant]
     Route: 049
  10. LIPITOR [Concomitant]
     Route: 049
  11. IMITREX [Concomitant]
     Dosage: 1 TABLET, MAY REPEAT IN 2 HOURS IF MIGRAINE PERSISTS
     Route: 049
  12. NICOTINE [Concomitant]
  13. STAFLEX [Concomitant]
     Indication: HEADACHE
     Dosage: 1-2 TABLETS PRN
     Route: 049

REACTIONS (3)
  - MYALGIA [None]
  - MYOCARDIAL INFARCTION [None]
  - VOMITING [None]
